FAERS Safety Report 17376551 (Version 1)
Quarter: 2020Q1

REPORT INFORMATION
  Report Type: Spontaneous
  Country: US (occurrence: US)
  Receive Date: 20200206
  Receipt Date: 20200206
  Transmission Date: 20200409
  Serious: No
  Sender: FDA-Public Use
  Company Number: US-ELI_LILLY_AND_COMPANY-US202002002332

PATIENT
  Sex: Female

DRUGS (2)
  1. EMGALITY [Suspect]
     Active Substance: GALCANEZUMAB-GNLM
     Indication: HEADACHE
     Dosage: 240 MG, SINGLE
     Route: 058
     Dates: start: 20200131
  2. CLONIDINE. [Concomitant]
     Active Substance: CLONIDINE
     Indication: HYPERTENSIVE CRISIS

REACTIONS (14)
  - Nausea [Unknown]
  - Sleep disorder [Not Recovered/Not Resolved]
  - Palpitations [Unknown]
  - Pain [Not Recovered/Not Resolved]
  - Tendon pain [Unknown]
  - Gait disturbance [Unknown]
  - Swelling face [Recovered/Resolved]
  - Eye swelling [Unknown]
  - Bone pain [Unknown]
  - Muscle discomfort [Unknown]
  - Sinus headache [Unknown]
  - Discomfort [Unknown]
  - Swollen tongue [Not Recovered/Not Resolved]
  - Rhinorrhoea [Unknown]

NARRATIVE: CASE EVENT DATE: 20200131
